FAERS Safety Report 6490777-6 (Version None)
Quarter: 2009Q4

REPORT INFORMATION
  Report Type: 
  Country: None (occurrence: None)
  Receive Date: 20091211
  Receipt Date: 20091203
  Transmission Date: 20100525
  Serious: Yes (Other)
  Sender: FDA-Public Use
  Company Number: US-JNJFOC-20091202343

PATIENT
  Sex: Female
  Weight: 46.72 kg

DRUGS (13)
  1. DURAGESIC-100 [Suspect]
     Route: 062
  2. DURAGESIC-100 [Suspect]
     Indication: BACK PAIN
     Route: 062
  3. POTASSIUM [Concomitant]
     Indication: BLOOD POTASSIUM DECREASED
     Route: 048
  4. ATIVAN [Concomitant]
     Indication: NERVOUSNESS
     Route: 048
  5. MIRALAX [Concomitant]
     Indication: CONSTIPATION
     Route: 048
  6. ASCORBIC ACID [Concomitant]
     Indication: PROPHYLAXIS
     Route: 048
  7. CALCIUM [Concomitant]
     Indication: OSTEOPOROSIS
     Route: 048
  8. HYDROCHLOROTHIAZIDE [Concomitant]
     Indication: BLOOD PRESSURE
     Route: 048
  9. ASPIRIN [Concomitant]
     Indication: HYPERTENSION
     Route: 048
  10. PREDNISONE TAB [Concomitant]
     Indication: CHRONIC OBSTRUCTIVE PULMONARY DISEASE
     Route: 048
  11. ADVAIR DISKUS 100/50 [Concomitant]
     Indication: CHRONIC OBSTRUCTIVE PULMONARY DISEASE
     Route: 055
  12. EQUATE STOOL SOFTENER [Concomitant]
     Indication: CONSTIPATION
     Route: 048
  13. HYDROXYCHLOR [Concomitant]
     Indication: BLOOD PRESSURE
     Route: 048

REACTIONS (7)
  - DRUG DOSE OMISSION [None]
  - DRUG INEFFECTIVE [None]
  - DYSPNOEA [None]
  - FATIGUE [None]
  - FEELING ABNORMAL [None]
  - NAUSEA [None]
  - OEDEMA PERIPHERAL [None]
